FAERS Safety Report 9444597 (Version 1)
Quarter: 2013Q3

REPORT INFORMATION
  Report Type: Spontaneous
  Country: US (occurrence: US)
  Receive Date: 20130807
  Receipt Date: 20130807
  Transmission Date: 20140515
  Serious: No
  Sender: FDA-Public Use
  Company Number: US-PFIZER INC-2013227783

PATIENT
  Age: 61 Year
  Sex: Female
  Weight: 109 kg

DRUGS (8)
  1. MEDROL [Suspect]
     Indication: URTICARIA
     Dosage: UNK
     Dates: start: 2013, end: 2013
  2. HYDROCORTISONE VALERATE [Suspect]
     Indication: URTICARIA
     Dosage: (0.2% STRENGTH) TWO TIMES A DAY
     Route: 061
     Dates: start: 2013, end: 2013
  3. CLOBETASOL [Concomitant]
     Indication: URTICARIA
     Dosage: (0.05% STRENGTH) TWO TIMES A DAY
     Dates: start: 2013
  4. COREG [Concomitant]
     Indication: HYPERTENSION
     Dosage: (HALF OF 6.25MG PILL) TWO TIMES A DAY
  5. ALTACE [Concomitant]
     Indication: HYPERTENSION
     Dosage: 10 MG, 1X/DAY
  6. ALPRAZOLAM [Concomitant]
     Dosage: 0.5 MG, 1X/DAY
  7. ULTRACET [Concomitant]
     Indication: BACK DISORDER
     Dosage: PARACETAMOL 325MG/TRAMADOL HYDROCHLORIDE 37.5 MG, TWO TIMES A DAY
  8. VIMOVO [Concomitant]
     Indication: BACK DISORDER
     Dosage: ESOMEPRAZOLE MAGNESIUM 20MG/ NAPROXEN 500 MG.1X/DAY

REACTIONS (1)
  - Drug ineffective [Unknown]
